FAERS Safety Report 8297241-2 (Version None)
Quarter: 2012Q2

REPORT INFORMATION
  Report Type: 
  Country: None (occurrence: None)
  Receive Date: 20120417
  Receipt Date: 20120417
  Transmission Date: 20120825
  Serious: Yes (Hospitalization)
  Sender: FDA-Public Use
  Company Number: None

PATIENT
  Sex: Male
  Weight: 72.1 kg

DRUGS (8)
  1. BEVACIZUMAB (RHUMAB VEGF) [Suspect]
     Dosage: 844 MG
     Dates: end: 20120227
  2. LEUCOVORIN CALCIUM [Suspect]
     Dosage: 1600 MG
     Dates: end: 20120227
  3. IRINOTECAN HCL [Suspect]
     Dosage: 720 MG
     Dates: end: 20120227
  4. IMODIUM [Concomitant]
  5. LOMOTIL [Concomitant]
  6. COLACE [Concomitant]
  7. SENOKOT [Concomitant]
  8. FLUOROURACIL [Suspect]
     Dosage: 11200 MG
     Dates: end: 20120227

REACTIONS (7)
  - WEIGHT DECREASED [None]
  - MOBILITY DECREASED [None]
  - MALAISE [None]
  - FAILURE TO THRIVE [None]
  - BEDRIDDEN [None]
  - DIARRHOEA [None]
  - CONSTIPATION [None]
